FAERS Safety Report 4761392-7 (Version None)
Quarter: 2005Q3

REPORT INFORMATION
  Report Type: 
  Country: None (occurrence: None)
  Receive Date: 20050906
  Receipt Date: 20050822
  Transmission Date: 20060218
  Serious: Yes (Hospitalization, Other)
  Sender: FDA-Public Use
  Company Number: US-AMGEN-US147268

PATIENT
  Sex: Male
  Weight: 83.1 kg

DRUGS (9)
  1. ENBREL [Suspect]
     Indication: PSORIATIC ARTHROPATHY
     Dates: start: 20020801
  2. PREVACID [Concomitant]
  3. LOTREL [Concomitant]
  4. COLCHICINE [Concomitant]
  5. ZYLOPRIM [Concomitant]
  6. MOBIC [Concomitant]
  7. ATENOLOL [Concomitant]
  8. LASIX [Concomitant]
  9. DIGOXIN [Concomitant]

REACTIONS (4)
  - ATRIAL FIBRILLATION [None]
  - CARDIAC FAILURE CONGESTIVE [None]
  - DYSPNOEA [None]
  - OEDEMA PERIPHERAL [None]
